FAERS Safety Report 9541140 (Version 3)
Quarter: 2014Q3

REPORT INFORMATION
  Report Type: Report from Study
  Country: US (occurrence: US)
  Receive Date: 20130923
  Receipt Date: 20140717
  Transmission Date: 20150326
  Serious: Yes (Hospitalization, Other)
  Sender: FDA-Public Use
  Company Number: US-JNJFOC-20130904772

PATIENT
  Age: 25 Year
  Sex: Female
  Weight: 58.1 kg

DRUGS (5)
  1. ACETAMINOPHEN. [Suspect]
     Active Substance: ACETAMINOPHEN
     Indication: SELF-INJURIOUS IDEATION
     Route: 048
  2. IBUPROFEN. [Suspect]
     Active Substance: IBUPROFEN
     Route: 048
  3. IBUPROFEN. [Suspect]
     Active Substance: IBUPROFEN
     Indication: SELF-INJURIOUS IDEATION
     Route: 048
  4. ETHANOL [Suspect]
     Active Substance: ALCOHOL
     Indication: SELF-INJURIOUS IDEATION
     Route: 048
  5. ACETAMINOPHEN. [Suspect]
     Active Substance: ACETAMINOPHEN
     Route: 048

REACTIONS (6)
  - Self injurious behaviour [Recovered/Resolved]
  - Poisoning [Recovered/Resolved]
  - Alanine aminotransferase increased [Recovered/Resolved]
  - Intentional product misuse [Recovered/Resolved]
  - Intentional overdose [Recovered/Resolved]
  - Vomiting [Recovered/Resolved]

NARRATIVE: CASE EVENT DATE: 20130908
